FAERS Safety Report 19745914 (Version 1)
Quarter: 2021Q3

REPORT INFORMATION
  Report Type: Spontaneous
  Country: US (occurrence: US)
  Receive Date: 20210824
  Receipt Date: 20210824
  Transmission Date: 20211014
  Serious: Yes (Hospitalization)
  Sender: FDA-Public Use
  Company Number: None

PATIENT
  Sex: Female

DRUGS (4)
  1. DOXYL/PYRID [Concomitant]
  2. HYDROXYPROGESTERONE [Suspect]
     Active Substance: HYDROXYPROGESTERONE
     Indication: PREGNANCY
     Dosage: ?          OTHER FREQUENCY:Q 7 DAYS;?
     Route: 030
  3. NORLYDA [Concomitant]
     Active Substance: NORETHINDRONE
  4. HYDROXYPROG [Concomitant]
     Active Substance: HYDROXYPROGESTERONE

REACTIONS (2)
  - Injection site swelling [None]
  - Surgery [None]
